FAERS Safety Report 7487193-7 (Version None)
Quarter: 2011Q2

REPORT INFORMATION
  Report Type: 
  Country: None (occurrence: None)
  Receive Date: 20110518
  Receipt Date: 20110418
  Transmission Date: 20111010
  Serious: Yes (Hospitalization, Other)
  Sender: FDA-Public Use
  Company Number: US-BAYER-201041732NA

PATIENT
  Age: 27 Year
  Sex: Female
  Weight: 86.168 kg

DRUGS (1)
  1. YASMIN [Suspect]
     Indication: PREMENSTRUAL SYNDROME
     Route: 048
     Dates: start: 20071001, end: 20080701

REACTIONS (4)
  - BILE DUCT OBSTRUCTION [None]
  - CHOLELITHIASIS [None]
  - CHOLECYSTITIS CHRONIC [None]
  - ENDOSCOPIC RETROGRADE CHOLANGIOPANCREATOGRAPHY [None]
